FAERS Safety Report 8655007 (Version 5)
Quarter: 2014Q1

REPORT INFORMATION
  Report Type: Report from Study
  Country: DE (occurrence: DE)
  Receive Date: 20120709
  Receipt Date: 20140305
  Transmission Date: 20141002
  Serious: Yes (Life-Threatening, Hospitalization)
  Sender: FDA-Public Use
  Company Number: PHHO2012DE009669

PATIENT
  Age: 29 Year
  Sex: Female
  Weight: 79.7 kg

DRUGS (5)
  1. RISPERIDONE [Suspect]
     Dosage: UNK
  2. FTY 720 [Suspect]
     Indication: RELAPSING-REMITTING MULTIPLE SCLEROSIS
     Dosage: 1 DF, 16 WK WS + FTY
     Route: 048
     Dates: start: 201202
  3. TYSABRI [Suspect]
     Indication: MULTIPLE SCLEROSIS
     Dosage: UNK
     Route: 041
     Dates: start: 200612, end: 20120222
  4. OPIPRAMOL [Suspect]
  5. CIPRALEX [Suspect]

REACTIONS (3)
  - Mental disorder due to a general medical condition [Unknown]
  - Personality change [Unknown]
  - Multiple sclerosis relapse [Recovering/Resolving]
